FAERS Safety Report 6930600-6 (Version None)
Quarter: 2010Q3

REPORT INFORMATION
  Report Type: 
  Country: None (occurrence: None)
  Receive Date: 20100818
  Receipt Date: 20100809
  Transmission Date: 20110219
  Serious: Yes (Hospitalization)
  Sender: FDA-Public Use
  Company Number: DE-AMGEN-QUU430001

PATIENT
  Sex: Female

DRUGS (4)
  1. NEULASTA [Suspect]
     Indication: CHEMOTHERAPY
     Route: 058
     Dates: start: 20100803
  2. TAXOL [Concomitant]
  3. EPIRUBICIN [Concomitant]
  4. CARBOPLATIN [Concomitant]

REACTIONS (4)
  - FEBRILE NEUTROPENIA [None]
  - GENERAL PHYSICAL HEALTH DETERIORATION [None]
  - INFECTION [None]
  - INFLUENZA LIKE ILLNESS [None]
